FAERS Safety Report 8394388-7 (Version None)
Quarter: 2012Q2

REPORT INFORMATION
  Report Type: 
  Country: None (occurrence: None)
  Receive Date: 20120525
  Receipt Date: 20120525
  Transmission Date: 20120825
  Serious: Yes (Other)
  Sender: FDA-Public Use
  Company Number: None

PATIENT
  Age: 51 Year
  Sex: Female
  Weight: 71.6683 kg

DRUGS (2)
  1. RIBAVIRIN [Suspect]
     Dosage: 5 CAP  DAILY PO
     Route: 048
     Dates: start: 20111021, end: 20111123
  2. TELAPREVIR 375 MG TABLETS VERTEX [Suspect]
     Indication: HEPATITIS C
     Dosage: 2 TAB TID PO
     Route: 048
     Dates: start: 20111021, end: 20111114

REACTIONS (1)
  - DRUG RASH WITH EOSINOPHILIA AND SYSTEMIC SYMPTOMS [None]
